FAERS Safety Report 18719423 (Version 1)
Quarter: 2021Q1

REPORT INFORMATION
  Report Type: Spontaneous
  Country: US (occurrence: US)
  Receive Date: 20210108
  Receipt Date: 20210108
  Transmission Date: 20210419
  Serious: No
  Sender: FDA-Public Use
  Company Number: US-ASTRAZENECA-2020SF67883

PATIENT
  Age: 24715 Day
  Sex: Female
  Weight: 79.4 kg

DRUGS (2)
  1. ELAQUIS [Concomitant]
     Indication: DEEP VEIN THROMBOSIS
  2. SYMBICORT [Suspect]
     Active Substance: BUDESONIDE\FORMOTEROL FUMARATE DIHYDRATE
     Indication: ASTHMA
     Dosage: 80?4.5 MCG TWO PUFFS TWICE A DAY
     Route: 055
     Dates: start: 20201201

REACTIONS (4)
  - Headache [Not Recovered/Not Resolved]
  - Product use issue [Unknown]
  - Erythema [Not Recovered/Not Resolved]
  - Device malfunction [Unknown]

NARRATIVE: CASE EVENT DATE: 202012
